FAERS Safety Report 13388439 (Version 1)
Quarter: 2017Q1

REPORT INFORMATION
  Report Type: Spontaneous
  Country: US (occurrence: US)
  Receive Date: 20170330
  Receipt Date: 20170330
  Transmission Date: 20170429
  Serious: Yes (Other)
  Sender: FDA-Public Use
  Company Number: US-GLAXOSMITHKLINE-US2017GSK044163

PATIENT
  Sex: Female

DRUGS (1)
  1. NUCALA [Suspect]
     Active Substance: MEPOLIZUMAB
     Indication: PRODUCT USED FOR UNKNOWN INDICATION
     Dosage: UNK
     Dates: start: 2016

REACTIONS (7)
  - Blood cortisol abnormal [Unknown]
  - Muscle spasms [Unknown]
  - Decreased activity [Unknown]
  - Lethargy [Unknown]
  - Adrenal insufficiency [Unknown]
  - Fatigue [Unknown]
  - Feeling abnormal [Unknown]
